FAERS Safety Report 16059883 (Version 1)
Quarter: 2019Q2

REPORT INFORMATION
  Report Type: Spontaneous
  Country: US (occurrence: US)
  Receive Date: 20190311
  Receipt Date: 20190311
  Transmission Date: 20190711
  Serious: No
  Sender: FDA-Public Use
  Company Number: None

PATIENT
  Age: 50 Year
  Sex: Female
  Weight: 60.75 kg

DRUGS (16)
  1. EMGALITY [Suspect]
     Active Substance: GALCANEZUMAB-GNLM
     Indication: POST CONCUSSION SYNDROME
     Dosage: ?          QUANTITY:1 INJECTION(S);OTHER FREQUENCY:1X/MINTH;?
     Route: 058
     Dates: start: 20190206, end: 20190225
  2. MONTELUKAST [Concomitant]
     Active Substance: MONTELUKAST SODIUM
  3. RIBOFLAVIN [Concomitant]
     Active Substance: RIBOFLAVIN
  4. TYLENOL [Concomitant]
     Active Substance: ACETAMINOPHEN
  5. EFFEXOR [Concomitant]
     Active Substance: VENLAFAXINE HYDROCHLORIDE
  6. LAMOTRAGINE [Concomitant]
     Active Substance: LAMOTRIGINE
  7. GABAPENTIN. [Concomitant]
     Active Substance: GABAPENTIN
  8. MULTIVITAMIN [Concomitant]
     Active Substance: VITAMINS
  9. MAGNESIUM GLYCINATE [Concomitant]
     Active Substance: MAGNESIUM GLYCINATE
  10. I-METHYL FOLATE [Concomitant]
  11. ASHWAGANDHA [Concomitant]
     Active Substance: HERBALS
  12. CO-Q 10 [Concomitant]
     Active Substance: UBIDECARENONE
  13. CELECOXIB. [Concomitant]
     Active Substance: CELECOXIB
  14. CALCIUM [Concomitant]
     Active Substance: CALCIUM
  15. VITAMIN D NOS [Concomitant]
     Active Substance: VITAMIN D NOS
  16. GLUCOSAMINE/CHONDROITIN [Concomitant]

REACTIONS (7)
  - Injection site urticaria [None]
  - Hypersomnia [None]
  - Pruritus generalised [None]
  - Injection site swelling [None]
  - Headache [None]
  - Injection site pruritus [None]
  - Pyrexia [None]

NARRATIVE: CASE EVENT DATE: 20190227
